FAERS Safety Report 4720093-1 (Version None)
Quarter: 2005Q3

REPORT INFORMATION
  Report Type: 
  Country: None (occurrence: None)
  Receive Date: 20050721
  Receipt Date: 20040413
  Transmission Date: 20060218
  Serious: No
  Sender: FDA-Public Use
  Company Number: US-GLAXOSMITHKLINE-A0506946A

PATIENT
  Age: 52 Year
  Sex: Female

DRUGS (7)
  1. IMITREX [Suspect]
     Indication: HEADACHE
     Dosage: 50MG AS REQUIRED
     Route: 048
  2. CORTEF [Concomitant]
  3. LEVOTHYROXINE [Concomitant]
  4. DILANTIN [Concomitant]
  5. NORTRIPTYLINE HCL [Concomitant]
  6. FOLIC ACID [Concomitant]
  7. FLUDROCORTISONE [Concomitant]

REACTIONS (1)
  - DRUG INEFFECTIVE [None]
